FAERS Safety Report 11654587 (Version 1)
Quarter: 2015Q4

REPORT INFORMATION
  Report Type: Spontaneous
  Country: US (occurrence: None)
  Receive Date: 20151022
  Receipt Date: 20151022
  Transmission Date: 20160304
  Serious: Yes (Disabling)
  Sender: FDA-Public Use
  Company Number: None

PATIENT
  Age: 44 Year
  Sex: Female
  Weight: 65.77 kg

DRUGS (5)
  1. MIRENA [Concomitant]
     Active Substance: LEVONORGESTREL
  2. MIRENA [Suspect]
     Active Substance: LEVONORGESTREL
  3. IBUPROPHEN [Concomitant]
     Active Substance: IBUPROFEN
  4. FLINTSTONES VITAMIN [Concomitant]
  5. IRON [Concomitant]
     Active Substance: IRON

REACTIONS (11)
  - Chest pain [None]
  - Suppressed lactation [None]
  - Mood swings [None]
  - Musculoskeletal pain [None]
  - Insomnia [None]
  - Diplopia [None]
  - Anxiety [None]
  - Hyperplasia [None]
  - Muscle spasms [None]
  - Palpitations [None]
  - Migraine [None]

NARRATIVE: CASE EVENT DATE: 20151015
